FAERS Safety Report 21808091 (Version 1)
Quarter: 2023Q1

REPORT INFORMATION
  Report Type: Report from Study
  Country: US (occurrence: US)
  Receive Date: 20230103
  Receipt Date: 20230103
  Transmission Date: 20230417
  Serious: No
  Sender: FDA-Public Use
  Company Number: US-ABBVIE-4225911

PATIENT
  Sex: Female

DRUGS (1)
  1. HUMIRA [Suspect]
     Active Substance: ADALIMUMAB
     Indication: Uveitis
     Route: 058
     Dates: start: 20210930, end: 20221110

REACTIONS (3)
  - Uterine enlargement [Unknown]
  - Blood pressure increased [Recovering/Resolving]
  - Postmenopausal haemorrhage [Unknown]
